FAERS Safety Report 13704995 (Version 1)
Quarter: 2017Q2

REPORT INFORMATION
  Report Type: Report from Study
  Country: None (occurrence: US)
  Receive Date: 20170630
  Receipt Date: 20170630
  Transmission Date: 20170830
  Serious: Yes (Other)
  Sender: FDA-Public Use
  Company Number: US-ABBVIE-17K-163-1996064-00

PATIENT
  Age: 53 Year
  Sex: Female

DRUGS (1)
  1. HUMIRA [Suspect]
     Active Substance: ADALIMUMAB
     Indication: RHEUMATOID ARTHRITIS
     Route: 058
     Dates: end: 20170613

REACTIONS (10)
  - Arterial injury [Unknown]
  - Nausea [Recovered/Resolved with Sequelae]
  - Headache [Recovering/Resolving]
  - Fatigue [Recovering/Resolving]
  - Viral upper respiratory tract infection [Not Recovered/Not Resolved]
  - Nasal congestion [Not Recovered/Not Resolved]
  - Sinus congestion [Recovering/Resolving]
  - Headache [Recovered/Resolved with Sequelae]
  - Procedural haemorrhage [Unknown]
  - Haemorrhagic anaemia [Recovering/Resolving]

NARRATIVE: CASE EVENT DATE: 201706
